FAERS Safety Report 12085291 (Version 1)
Quarter: 2016Q1

REPORT INFORMATION
  Report Type: Spontaneous
  Country: US (occurrence: US)
  Receive Date: 20160217
  Receipt Date: 20160217
  Transmission Date: 20160526
  Serious: Yes (Other)
  Sender: FDA-Public Use
  Company Number: US-BAYER-2016-029630

PATIENT
  Sex: Male

DRUGS (1)
  1. AFRIN NO DRIP ORIGINAL PUMP MIST [Suspect]
     Active Substance: OXYMETAZOLINE HYDROCHLORIDE
     Indication: SINUS CONGESTION
     Dosage: 2 DF, ONCE
     Dates: start: 20160120, end: 20160120

REACTIONS (3)
  - Ear haemorrhage [None]
  - Ear pain [None]
  - Tympanic membrane perforation [None]

NARRATIVE: CASE EVENT DATE: 20160120
